FAERS Safety Report 19638661 (Version 1)
Quarter: 2021Q3

REPORT INFORMATION
  Report Type: Report from Study
  Country: HK (occurrence: HK)
  Receive Date: 20210730
  Receipt Date: 20210730
  Transmission Date: 20211014
  Serious: Yes (Other)
  Sender: FDA-Public Use
  Company Number: HK-SUN PHARMACEUTICAL INDUSTRIES LTD-2021R1-306107

PATIENT
  Age: 41 Year
  Sex: Female

DRUGS (4)
  1. FUROSEMIDE. [Suspect]
     Active Substance: FUROSEMIDE
     Indication: WEIGHT DECREASED
     Dosage: UNK
     Route: 065
  2. ALOE?EMODIN [Concomitant]
     Active Substance: ALOE EMODIN
     Indication: WEIGHT DECREASED
     Dosage: UNK
     Route: 065
  3. BISACODYL. [Suspect]
     Active Substance: BISACODYL
     Indication: WEIGHT DECREASED
     Dosage: UNK
     Route: 065
  4. RHEIN [Concomitant]
     Active Substance: RHEIN
     Indication: WEIGHT DECREASED
     Dosage: UNK
     Route: 065

REACTIONS (3)
  - Seizure [Unknown]
  - Cardiac arrest [Unknown]
  - Hypokalaemia [Unknown]
